FAERS Safety Report 17871919 (Version 1)
Quarter: 2020Q2

REPORT INFORMATION
  Report Type: Spontaneous
  Country: US (occurrence: US)
  Receive Date: 20200608
  Receipt Date: 20200608
  Transmission Date: 20200714
  Serious: No
  Sender: FDA-Public Use
  Company Number: US-KRAMERLABS-2019-US-012778

PATIENT
  Age: 81 Year
  Sex: Male
  Weight: 72.58 kg

DRUGS (1)
  1. KETOCONAZOLE (NON-SPECIFIC) [Suspect]
     Active Substance: KETOCONAZOLE
     Indication: SKIN DISORDER
     Dosage: UNK (1 IN 3 D)
     Route: 061
     Dates: start: 2018

REACTIONS (10)
  - Skin disorder [Not Recovered/Not Resolved]
  - Acne [Not Recovered/Not Resolved]
  - Dry skin [Unknown]
  - Adverse event [Unknown]
  - Skin exfoliation [Unknown]
  - Application site swelling [Not Recovered/Not Resolved]
  - Wrong technique in product usage process [Unknown]
  - Pruritus [Unknown]
  - Swelling [Unknown]
  - Erythema [Unknown]

NARRATIVE: CASE EVENT DATE: 2019
